FAERS Safety Report 8601400-6 (Version None)
Quarter: 2012Q3

REPORT INFORMATION
  Report Type: 
  Country: None (occurrence: None)
  Receive Date: 20120806
  Receipt Date: 20120806
  Transmission Date: 20120928
  Serious: Yes (Other)
  Sender: FDA-Public Use
  Company Number: None

PATIENT
  Age: 39 Year
  Sex: Female
  Weight: 72.5755 kg

DRUGS (1)
  1. IBUPROFEN [Suspect]
     Indication: CARDIAC DISORDER
     Dosage: 800 MG 2/DAY
     Dates: start: 20120711

REACTIONS (4)
  - PRODUCT TAMPERING [None]
  - DRUG INEFFECTIVE [None]
  - BODY MASS INDEX DECREASED [None]
  - PRURITUS [None]
